FAERS Safety Report 5045221-2 (Version None)
Quarter: 2006Q3

REPORT INFORMATION
  Report Type: 
  Country: None (occurrence: None)
  Receive Date: 20060707
  Receipt Date: 20060630
  Transmission Date: 20061208
  Serious: Yes (Other)
  Sender: FDA-Public Use
  Company Number: JP-JPN-A200602401

PATIENT

DRUGS (1)
  1. PAXIL [Suspect]
     Route: 048
     Dates: start: 20060530

REACTIONS (2)
  - HAEMORRHAGIC DISORDER [None]
  - HEPATIC FUNCTION ABNORMAL [None]
